FAERS Safety Report 11002841 (Version 1)
Quarter: 2015Q2

REPORT INFORMATION
  Report Type: Spontaneous
  Country: US (occurrence: US)
  Receive Date: 20150408
  Receipt Date: 20150408
  Transmission Date: 20150821
  Serious: No
  Sender: FDA-Public Use
  Company Number: US-BAYER-2015-037852

PATIENT
  Age: 47 Year
  Sex: Male

DRUGS (8)
  1. TOLTERODINE [Concomitant]
     Active Substance: TOLTERODINE
     Dosage: UNK
  2. BACLOFEN. [Concomitant]
     Active Substance: BACLOFEN
     Dosage: UNK
  3. EXTAVIA [Suspect]
     Active Substance: INTERFERON BETA-1B
     Indication: PRODUCT USED FOR UNKNOWN INDICATION
     Dosage: 0.3 MG, UNK
     Route: 058
  4. MODAFINIL. [Concomitant]
     Active Substance: MODAFINIL
     Dosage: UNK
  5. GINKO BILOBA [Concomitant]
     Active Substance: GINKGO
     Dosage: UNK
  6. BETASERON [Suspect]
     Active Substance: INTERFERON BETA-1B
     Indication: PRODUCT USED FOR UNKNOWN INDICATION
     Dosage: UNK
  7. GINSENG [Concomitant]
     Active Substance: ASIAN GINSENG
     Dosage: UNK
  8. EXTAVIA [Suspect]
     Active Substance: INTERFERON BETA-1B
     Indication: MULTIPLE SCLEROSIS

REACTIONS (2)
  - Influenza like illness [None]
  - Pain [None]
